FAERS Safety Report 7031637-1 (Version None)
Quarter: 2010Q4

REPORT INFORMATION
  Report Type: 
  Country: None (occurrence: None)
  Receive Date: 20101006
  Receipt Date: 20101006
  Transmission Date: 20110411
  Serious: No
  Sender: FDA-Public Use
  Company Number: None

PATIENT
  Sex: Male

DRUGS (2)
  1. PROCRIT [Suspect]
     Indication: BLOOD DISORDER
     Dosage: 40,000 U/1 ML VIAL (4/PK) INJECT 1 ML (40,000 UNITS SUBCUTANEOUSLY 2 TIMES A WEEK
     Route: 058
  2. PROCRIT [Suspect]
     Indication: LYMPHATIC DISORDER
     Dosage: 40,000 U/1 ML VIAL (4/PK) INJECT 1 ML (40,000 UNITS SUBCUTANEOUSLY 2 TIMES A WEEK
     Route: 058

REACTIONS (1)
  - DYSPNOEA [None]
